FAERS Safety Report 20701302 (Version 1)
Quarter: 2022Q2

REPORT INFORMATION
  Report Type: Spontaneous
  Country: ES (occurrence: ES)
  Receive Date: 20220412
  Receipt Date: 20220412
  Transmission Date: 20220721
  Serious: Yes (Disabling, Other)
  Sender: FDA-Public Use
  Company Number: None

PATIENT
  Age: 30 Year
  Sex: Male
  Weight: 120 kg

DRUGS (2)
  1. FINASTERIDE [Suspect]
     Active Substance: FINASTERIDE
     Indication: Androgenetic alopecia
     Dosage: 1 MILLIGRAM DAILY; (2624A)
     Route: 048
     Dates: start: 20151020, end: 20171220
  2. MINOXIDIL VINEYARDS [Concomitant]
     Indication: Androgenetic alopecia
     Dosage: 1 ML DAILY; FORM STRENGTH 50 MG/ML 3 BOTTLES OF 60 ML
     Dates: start: 20110520, end: 20171229

REACTIONS (13)
  - Myalgia [Not Recovered/Not Resolved]
  - Painful ejaculation [Not Recovered/Not Resolved]
  - Anxiety [Not Recovered/Not Resolved]
  - Idiopathic environmental intolerance [Not Recovered/Not Resolved]
  - Penile size reduced [Not Recovered/Not Resolved]
  - Weight abnormal [Not Recovered/Not Resolved]
  - Cognitive disorder [Not Recovered/Not Resolved]
  - Epididymitis [Unknown]
  - Insomnia [Not Recovered/Not Resolved]
  - Hyperhidrosis [Not Recovered/Not Resolved]
  - Loss of libido [Not Recovered/Not Resolved]
  - Testicular pain [Not Recovered/Not Resolved]
  - Arthralgia [Not Recovered/Not Resolved]

NARRATIVE: CASE EVENT DATE: 20170113
